FAERS Safety Report 8602130-7 (Version None)
Quarter: 2012Q3

REPORT INFORMATION
  Report Type: 
  Country: None (occurrence: None)
  Receive Date: 20120817
  Receipt Date: 20120806
  Transmission Date: 20120928
  Serious: Yes (Hospitalization)
  Sender: FDA-Public Use
  Company Number: IN-NOVOPROD-356898

PATIENT
  Age: 38 Year
  Sex: Female

DRUGS (3)
  1. VICTOZA [Suspect]
     Dosage: 1.2 MG, QD
     Route: 058
  2. INSULIN [Suspect]
     Indication: TYPE 2 DIABETES MELLITUS
     Route: 058
  3. VICTOZA [Suspect]
     Indication: PRODUCT USED FOR UNKNOWN INDICATION
     Dosage: 0.6 MG, QD
     Route: 058

REACTIONS (2)
  - VASCULITIS [None]
  - LACUNAR INFARCTION [None]
